FAERS Safety Report 9573744 (Version 1)
Quarter: 2013Q4

REPORT INFORMATION
  Report Type: Spontaneous
  Country: US (occurrence: FR)
  Receive Date: 20131001
  Receipt Date: 20131001
  Transmission Date: 20140711
  Serious: Yes (Other)
  Sender: FDA-Public Use
  Company Number: FR-FRI-1000049340

PATIENT
  Age: 60 Year
  Sex: Female

DRUGS (1)
  1. DILTIAZEM [Suspect]
     Indication: TACHYCARDIA
     Dates: start: 201309

REACTIONS (4)
  - Paraesthesia [Unknown]
  - Headache [Unknown]
  - Hot flush [Unknown]
  - Insomnia [Unknown]
